FAERS Safety Report 14890455 (Version 1)
Quarter: 2018Q2

REPORT INFORMATION
  Report Type: Report from Study
  Country: US (occurrence: US)
  Receive Date: 20180514
  Receipt Date: 20180514
  Transmission Date: 20180711
  Serious: Yes (Hospitalization)
  Sender: FDA-Public Use
  Company Number: US-TEVA-2018-US-867142

PATIENT
  Age: 74 Year
  Sex: Female

DRUGS (5)
  1. AMANTADINE HCL 100 MG CAPSULE [Concomitant]
     Dosage: 100 MILLIGRAM DAILY;
     Route: 048
  2. MECLIZINE 25 MG TABLET [Concomitant]
     Dosage: 50 MILLIGRAM DAILY; PRN
     Route: 048
  3. NORVASC (AMLODIPINE 2.5 MG) TABLET [Concomitant]
     Dosage: 5 MILLIGRAM DAILY;
     Route: 048
  4. VITAMIN B COMPLEX TABLET [Concomitant]
     Dosage: 1 TAB QAM
     Route: 048
  5. AUSTEDO [Suspect]
     Active Substance: DEUTETRABENAZINE
     Indication: HUNTINGTON^S DISEASE
     Dosage: 24 MILLIGRAM DAILY;
     Route: 065
     Dates: start: 20170803

REACTIONS (4)
  - Hypercapnia [Unknown]
  - Cardiac operation [Not Recovered/Not Resolved]
  - Dyspnoea [Unknown]
  - Myocardial infarction [Not Recovered/Not Resolved]

NARRATIVE: CASE EVENT DATE: 2018
